FAERS Safety Report 5774981-8 (Version None)
Quarter: 2008Q2

REPORT INFORMATION
  Report Type: 
  Country: None (occurrence: None)
  Receive Date: 20080617
  Receipt Date: 20080602
  Transmission Date: 20081010
  Serious: Yes (Other)
  Sender: FDA-Public Use
  Company Number: PHHY2008BR06557

PATIENT
  Sex: Female
  Weight: 65 kg

DRUGS (12)
  1. FORASEQ [Suspect]
     Indication: ASTHMA
     Dosage: UNK, BID
  2. RYTHMOL [Concomitant]
     Indication: ARRHYTHMIA
     Dosage: 1 DF, TID
     Route: 048
  3. DILACORON [Concomitant]
     Indication: ARRHYTHMIA
     Dosage: UNK, BID
     Route: 048
  4. APROZIDE [Concomitant]
     Indication: HYPERTENSION
     Dosage: UNK, QD
     Route: 048
  5. GLIMEPIRIDE [Concomitant]
     Indication: DIABETES MELLITUS
     Dosage: 2 MG, AT LUNCH
     Route: 048
  6. GLIMEPIRIDE [Concomitant]
     Dosage: 1 MG, AT DINNER
     Route: 048
  7. METFORMIN HYDROCHLORIDE [Concomitant]
     Indication: DIABETES MELLITUS
     Dosage: UNK, BID
     Route: 048
  8. SINGULAIR [Concomitant]
     Indication: ASTHMA
     Dosage: 1 DF, QD
     Route: 048
  9. PRAVASTATIN [Concomitant]
     Indication: BLOOD CHOLESTEROL
     Dosage: 1 DF, UNK
     Route: 048
  10. ORMIGREIN [Concomitant]
     Indication: MIGRAINE
     Dosage: 1 DF, PRN
  11. POLARAMINE [Concomitant]
     Indication: HYPERSENSITIVITY
     Dosage: 1 DF, UNK
     Route: 048
  12. AVADEN [Concomitant]
     Indication: HORMONE REPLACEMENT THERAPY

REACTIONS (16)
  - ASTHMA [None]
  - EYE PRURITUS [None]
  - FATIGUE [None]
  - FEELING ABNORMAL [None]
  - HEADACHE [None]
  - HEPATIC NEOPLASM [None]
  - HEPATIC STEATOSIS [None]
  - INCREASED UPPER AIRWAY SECRETION [None]
  - INFLUENZA [None]
  - INSOMNIA [None]
  - LYMPHADENOPATHY [None]
  - NUCLEAR MAGNETIC RESONANCE IMAGING ABNORMAL [None]
  - OEDEMA PERIPHERAL [None]
  - PAIN [None]
  - UTERINE LEIOMYOMA [None]
  - WEIGHT INCREASED [None]
